FAERS Safety Report 6657744-0 (Version None)
Quarter: 2010Q1

REPORT INFORMATION
  Report Type: 
  Country: None (occurrence: None)
  Receive Date: 20100330
  Receipt Date: 20090330
  Transmission Date: 20100710
  Serious: Yes (Death)
  Sender: FDA-Public Use
  Company Number: US-TYCO HEALTHCARE/MALLINCKRODT-T200900767

PATIENT

DRUGS (1)
  1. METHADOSE [Suspect]

REACTIONS (1)
  - DRUG ABUSE [None]
